FAERS Safety Report 23879981 (Version 1)
Quarter: 2024Q2

REPORT INFORMATION
  Report Type: Spontaneous
  Country: IN (occurrence: None)
  Receive Date: 20240521
  Receipt Date: 20240521
  Transmission Date: 20240716
  Serious: Yes (Death)
  Sender: FDA-Public Use
  Company Number: IN-ROCHE-3553127

PATIENT
  Age: 49 Year
  Sex: Female

DRUGS (1)
  1. TECENTRIQ [Suspect]
     Active Substance: ATEZOLIZUMAB
     Indication: Vaginal cancer metastatic
     Route: 041
     Dates: start: 20240329

REACTIONS (2)
  - Off label use [Unknown]
  - Death [Fatal]
